FAERS Safety Report 8336149-0 (Version None)
Quarter: 2012Q1

REPORT INFORMATION
  Report Type: 
  Country: None (occurrence: None)
  Receive Date: 20120329
  Receipt Date: 20100121
  Transmission Date: 20120608
  Serious: Yes (Hospitalization)
  Sender: FDA-Public Use
  Company Number: PHEH2009US09803

PATIENT
  Age: 81 Year
  Sex: Female
  Weight: 49.9 kg

DRUGS (7)
  1. COREG [Concomitant]
  2. LEXAPRO [Concomitant]
  3. LIPITOR [Concomitant]
  4. EXELON [Suspect]
     Indication: DEMENTIA
     Dosage: 4.6 MG, QD, TRANSDERMAL ; 9.5 MG, QD, TRANSDERMAL ;  4.6 MG, QD, TRANSDERMAL
     Route: 062
     Dates: start: 20071201, end: 20081101
  5. EXELON [Suspect]
     Indication: DEMENTIA
     Dosage: 4.6 MG, QD, TRANSDERMAL ; 9.5 MG, QD, TRANSDERMAL ;  4.6 MG, QD, TRANSDERMAL
     Route: 062
     Dates: start: 20091001
  6. EXELON [Suspect]
     Indication: DEMENTIA
     Dosage: 4.6 MG, QD, TRANSDERMAL ; 9.5 MG, QD, TRANSDERMAL ;  4.6 MG, QD, TRANSDERMAL
     Route: 062
     Dates: start: 20081101, end: 20091001
  7. DIGOXIN [Concomitant]

REACTIONS (6)
  - DEHYDRATION [None]
  - DIARRHOEA [None]
  - VOMITING [None]
  - CONFUSIONAL STATE [None]
  - WEIGHT DECREASED [None]
  - NAUSEA [None]
